FAERS Safety Report 13895920 (Version 1)
Quarter: 2017Q3

REPORT INFORMATION
  Report Type: Report from Study
  Country: IT (occurrence: IT)
  Receive Date: 20170823
  Receipt Date: 20170823
  Transmission Date: 20171127
  Serious: Yes (Other)
  Sender: FDA-Public Use
  Company Number: IT-BRISTOL-MYERS SQUIBB COMPANY-BMS-2017-029802

PATIENT
  Age: 76 Year
  Sex: Male

DRUGS (1)
  1. NIVOLUMAB [Suspect]
     Active Substance: NIVOLUMAB
     Indication: NON-SMALL CELL LUNG CANCER
     Dosage: 3 MG/KG, Q2WK
     Route: 042
     Dates: start: 20160408, end: 20170303

REACTIONS (4)
  - Disorientation [Unknown]
  - Adrenal insufficiency [Recovered/Resolved]
  - Neurotoxicity [Unknown]
  - Asthenia [Unknown]

NARRATIVE: CASE EVENT DATE: 20161015
